FAERS Safety Report 15515656 (Version 7)
Quarter: 2019Q1

REPORT INFORMATION
  Report Type: Report from Study
  Country: DE (occurrence: DE)
  Receive Date: 20181017
  Receipt Date: 20190321
  Transmission Date: 20190417
  Serious: Yes (Other)
  Sender: FDA-Public Use
  Company Number: PHHY2018DE127830

PATIENT
  Sex: Female
  Weight: 86 kg

DRUGS (7)
  1. KISQALI [Suspect]
     Active Substance: RIBOCICLIB
     Dosage: 600 MG, QD (21 DAYS OF INTAKE, THEN 7 DAYS PAUSE)
     Route: 048
     Dates: start: 20190111, end: 20190131
  2. LETROZOLE. [Suspect]
     Active Substance: LETROZOLE
     Indication: BREAST CANCER METASTATIC
     Dosage: 2.5 MG, QD
     Route: 048
     Dates: start: 20180824
  3. KISQALI [Suspect]
     Active Substance: RIBOCICLIB
     Dosage: 600 MG, QD (21 DAYS OF INTAKE, THEN 7 DAYS PAUSE)
     Route: 048
     Dates: start: 20181214, end: 20190103
  4. KISQALI [Suspect]
     Active Substance: RIBOCICLIB
     Dosage: 600 MG, QD (21 DAYS OF INTAKE, THEN 7 DAYS PAUSE)
     Route: 048
     Dates: start: 20181116, end: 20181206
  5. KISQALI [Suspect]
     Active Substance: RIBOCICLIB
     Indication: BREAST CANCER METASTATIC
     Dosage: 600 MG, QD (21 DAYS)
     Route: 048
     Dates: start: 20180824, end: 20180913
  6. KISQALI [Suspect]
     Active Substance: RIBOCICLIB
     Dosage: 600 MG, QD (21 DAYS)
     Route: 048
     Dates: start: 20180921, end: 20181011
  7. KISQALI [Suspect]
     Active Substance: RIBOCICLIB
     Dosage: 600 MG, QD (21 DAYS)
     Route: 048
     Dates: start: 20181019, end: 20181108

REACTIONS (3)
  - General physical condition decreased [Not Recovered/Not Resolved]
  - Neutropenia [Recovered/Resolved]
  - Leukopenia [Recovered/Resolved]

NARRATIVE: CASE EVENT DATE: 20181008
